FAERS Safety Report 6603507-1 (Version None)
Quarter: 2010Q1

REPORT INFORMATION
  Report Type: 
  Country: None (occurrence: None)
  Receive Date: 20100226
  Receipt Date: 20090805
  Transmission Date: 20100710
  Serious: No
  Sender: FDA-Public Use
  Company Number: A0801446A

PATIENT

DRUGS (2)
  1. VALTREX [Suspect]
     Indication: HERPES ZOSTER OTICUS
     Dosage: 500MG PER DAY
     Route: 048
  2. PREDNISONE TAB [Concomitant]
     Indication: HERPES ZOSTER OTICUS
     Dosage: 10MG PER DAY
     Route: 048

REACTIONS (1)
  - DRUG EFFECT DECREASED [None]
